FAERS Safety Report 8069517-5 (Version None)
Quarter: 2012Q1

REPORT INFORMATION
  Report Type: 
  Country: None (occurrence: None)
  Receive Date: 20120125
  Receipt Date: 20120120
  Transmission Date: 20120608
  Serious: Yes (Death, Other)
  Sender: FDA-Public Use
  Company Number: BR-SANOFI-AVENTIS-2012SA004661

PATIENT
  Sex: Male

DRUGS (1)
  1. GLYBURIDE [Suspect]
     Route: 065

REACTIONS (4)
  - MUTISM [None]
  - DEATH [None]
  - BLINDNESS [None]
  - DEAFNESS [None]
